FAERS Safety Report 5097081-1 (Version None)
Quarter: 2006Q3

REPORT INFORMATION
  Report Type: 
  Country: None (occurrence: None)
  Receive Date: 20060906
  Receipt Date: 20060828
  Transmission Date: 20061208
  Serious: Yes (Hospitalization)
  Sender: FDA-Public Use
  Company Number: US-JNJFOC-20060806455

PATIENT
  Sex: Female
  Weight: 127.01 kg

DRUGS (19)
  1. DURAGESIC-100 [Suspect]
     Indication: PAIN
     Route: 062
     Dates: start: 20030101
  2. ALDACTONE [Concomitant]
     Indication: BLOOD PRESSURE
     Route: 048
  3. ALLOPURINOL [Concomitant]
     Indication: ADRENAL DISORDER
     Route: 048
  4. EFFEXOR [Concomitant]
     Indication: DEPRESSION
     Route: 048
  5. PREMARIN [Concomitant]
     Indication: HORMONE REPLACEMENT THERAPY
     Route: 048
  6. PROTONIX [Concomitant]
     Indication: GASTROINTESTINAL DISORDER
     Route: 048
  7. FUROSEMIDE [Concomitant]
     Dosage: AS NEEDED
     Route: 048
  8. FUROSEMIDE [Concomitant]
     Indication: FLUID RETENTION
     Route: 048
  9. POTASSIUM [Concomitant]
     Indication: VITAMIN K
     Route: 048
  10. DEXAMETHASONE [Concomitant]
     Indication: ADRENAL DISORDER
     Route: 048
  11. ACCUPRIL [Concomitant]
     Indication: BLOOD PRESSURE
     Route: 048
  12. CARDIZEM [Concomitant]
     Indication: CARDIAC DISORDER
     Route: 048
  13. FLORINEF [Concomitant]
     Indication: ADRENAL DISORDER
     Route: 048
  14. PHENERGAN HCL [Concomitant]
     Indication: NAUSEA
     Dosage: AS NEEDED
     Route: 048
  15. LOMOTIL [Concomitant]
     Indication: DIARRHOEA
     Dosage: AS NEEDED
     Route: 048
  16. GLUCOTROL [Concomitant]
     Indication: DIABETES MELLITUS
     Route: 048
  17. LANTUS [Concomitant]
     Indication: DIABETES MELLITUS
     Dosage: SLIDING SCALE
     Route: 058
  18. NOVOLOG [Concomitant]
     Indication: DIABETES MELLITUS
     Dosage: SLIDING SCALE
     Route: 058
  19. MEDROXYPROGESTERONE [Concomitant]
     Indication: HORMONE REPLACEMENT THERAPY
     Route: 048

REACTIONS (3)
  - DIZZINESS [None]
  - FEELING ABNORMAL [None]
  - STAPHYLOCOCCAL INFECTION [None]
